FAERS Safety Report 9162013 (Version 8)
Quarter: 2013Q4

REPORT INFORMATION
  Report Type: Report from Study
  Country: GB (occurrence: GB)
  Receive Date: 20130314
  Receipt Date: 20131021
  Transmission Date: 20140711
  Serious: Yes (Hospitalization, Other)
  Sender: FDA-Public Use
  Company Number: GB-VERTEX PHARMACEUTICALS INC.-2013-003496

PATIENT
  Age: 41 Year
  Sex: Female
  Weight: 50 kg

DRUGS (10)
  1. VX-950 (TELAPREVIR) [Suspect]
     Indication: HEPATITIS C
     Dosage: 750 MG, TID
     Route: 048
     Dates: start: 20130219, end: 20130416
  2. RIBAVIRIN [Suspect]
     Indication: HEPATITIS C
     Dosage: UNK
     Route: 048
     Dates: start: 20130219
  3. RIBAVIRIN [Suspect]
     Dosage: 400 MG, QD
     Route: 048
     Dates: start: 20130319
  4. PEGINTERFERON ALFA [Suspect]
     Indication: HEPATITIS C
     Dosage: UNK
     Route: 058
     Dates: start: 20130219
  5. E45 [Concomitant]
     Dosage: UNK, BID
     Route: 061
     Dates: start: 20130219
  6. METOCLOPRAMIDE [Concomitant]
     Dosage: 10 MG, BID (OCCASIONAL USE ONLY)
     Route: 065
     Dates: start: 20130305
  7. ANUSOL (BISMUTH OXIDE,ZINC OXIDE,BISMUTH SUBGALLATE) [Concomitant]
     Dosage: UNK UNK, TID
     Route: 061
     Dates: start: 20130319, end: 20130415
  8. SANDO-K [Concomitant]
     Dosage: 2 DF, TID
     Route: 048
     Dates: start: 20130305
  9. SANDO-K [Concomitant]
     Dosage: DOSAGE FORM: TABLET
  10. TRAMADOL [Concomitant]
     Indication: PRODUCT USED FOR UNKNOWN INDICATION
     Dosage: UNK
     Route: 065

REACTIONS (11)
  - Epistaxis [Recovered/Resolved]
  - Blood potassium decreased [Not Recovered/Not Resolved]
  - Platelet count decreased [Unknown]
  - Anaemia [Recovered/Resolved]
  - Blood count abnormal [Not Recovered/Not Resolved]
  - Restless legs syndrome [Unknown]
  - Insomnia [Unknown]
  - Thirst [Unknown]
  - Skin burning sensation [Unknown]
  - Pruritus [Unknown]
  - Nausea [Recovered/Resolved]
